FAERS Safety Report 7311583-6 (Version None)
Quarter: 2011Q1

REPORT INFORMATION
  Report Type: 
  Country: None (occurrence: None)
  Receive Date: 20110216
  Receipt Date: 20110216
  Transmission Date: 20110831
  Serious: Yes (Other)
  Sender: FDA-Public Use
  Company Number: None

PATIENT
  Age: 45 Year
  Sex: Female
  Weight: 95.2554 kg

DRUGS (4)
  1. AVELOX [Suspect]
     Indication: NASOPHARYNGITIS
     Dosage: 1 DAY PO
     Route: 048
     Dates: start: 20110203, end: 20110208
  2. AVELOX [Suspect]
     Indication: INFECTION
     Dosage: 1 DAY PO
     Route: 048
     Dates: start: 20110203, end: 20110208
  3. AVELOX [Suspect]
     Indication: NASOPHARYNGITIS
     Dosage: 1 DAY PO
     Route: 048
     Dates: start: 20110203, end: 20110208
  4. AVELOX [Suspect]
     Indication: INFECTION
     Dosage: 1 DAY PO
     Route: 048
     Dates: start: 20110203, end: 20110208

REACTIONS (1)
  - ARTHRALGIA [None]
